FAERS Safety Report 24125699 (Version 1)
Quarter: 2024Q3

REPORT INFORMATION
  Report Type: Spontaneous
  Country: IT (occurrence: IT)
  Receive Date: 20240723
  Receipt Date: 20240723
  Transmission Date: 20241017
  Serious: Yes (Other)
  Sender: MERCK
  Company Number: None

PATIENT
  Age: 39 Year
  Sex: Female

DRUGS (8)
  1. PEMBROLIZUMAB [Suspect]
     Active Substance: PEMBROLIZUMAB
     Indication: Cervix carcinoma
     Dosage: UNK
     Dates: start: 20240403, end: 20240403
  2. PEMBROLIZUMAB [Suspect]
     Active Substance: PEMBROLIZUMAB
     Indication: Endometrial cancer stage IV
     Dosage: UNK
     Dates: start: 20240513, end: 20240513
  3. PEMBROLIZUMAB [Suspect]
     Active Substance: PEMBROLIZUMAB
     Indication: Endometrial cancer metastatic
  4. CARBOPLATIN [Suspect]
     Active Substance: CARBOPLATIN
     Indication: Endometrial cancer metastatic
     Dosage: UNK
     Dates: start: 20240403, end: 20240403
  5. CARBOPLATIN [Suspect]
     Active Substance: CARBOPLATIN
     Indication: Endometrial cancer stage IV
     Dosage: AUC 5, TOTAL DOSE 440 MG DAY 1 Q21||Q3W, FORMUALTION: SOLUTION FOR INFUSION, ROUTE OF ADMINISTRATION
     Dates: start: 20240513, end: 20240513
  6. CARBOPLATIN [Suspect]
     Active Substance: CARBOPLATIN
     Indication: Cervix carcinoma
  7. TAXOL [Suspect]
     Active Substance: PACLITAXEL
     Indication: Endometrial cancer stage IV
     Dosage: 100 MG DAY 1,8,15 EVERY 21 DAYS, ROUTE OF ADMINISTRATION: ENDOVENOUS, FORMULATION: SOLUTION FOR INFU
     Dates: start: 20240403, end: 20240403
  8. TAXOL [Suspect]
     Active Substance: PACLITAXEL
     Indication: Endometrial cancer metastatic
     Dosage: UNK
     Dates: start: 20240513, end: 20240513

REACTIONS (4)
  - Pancytopenia [Recovered/Resolved with Sequelae]
  - Thrombocytopenia [Unknown]
  - Product use issue [Unknown]
  - Inappropriate schedule of product administration [Unknown]

NARRATIVE: CASE EVENT DATE: 20240101
